FAERS Safety Report 5427308-5 (Version None)
Quarter: 2007Q3

REPORT INFORMATION
  Report Type: 
  Country: None (occurrence: None)
  Receive Date: 20070828
  Receipt Date: 20070823
  Transmission Date: 20080115
  Serious: Yes (Congenital Anomaly, Other)
  Sender: FDA-Public Use
  Company Number: US-BRISTOL-MYERS SQUIBB COMPANY-13719141

PATIENT
  Sex: Female

DRUGS (3)
  1. DIDANOSINE [Suspect]
     Route: 064
  2. RETROVIR [Suspect]
     Dosage: PRIOR TO CONCEPTION
     Route: 064
  3. KALETRA [Suspect]
     Dosage: PRIOR TO CONCEPTION
     Route: 064

REACTIONS (8)
  - ATRIOVENTRICULAR BLOCK COMPLETE [None]
  - CARDIAC FAILURE CONGESTIVE [None]
  - COARCTATION OF THE AORTA [None]
  - HEAT RASH [None]
  - METABOLIC ACIDOSIS [None]
  - PATENT DUCTUS ARTERIOSUS [None]
  - PREGNANCY [None]
  - VENTRICULAR SEPTAL DEFECT [None]
